FAERS Safety Report 8591005-8 (Version None)
Quarter: 2012Q3

REPORT INFORMATION
  Report Type: 
  Country: None (occurrence: None)
  Receive Date: 20120813
  Receipt Date: 20120807
  Transmission Date: 20120928
  Serious: Yes (Other)
  Sender: FDA-Public Use
  Company Number: US-VERTEX PHARMACEUTICALS INC.-AE-2012-011794

PATIENT

DRUGS (5)
  1. RIBAVIRIN [Concomitant]
     Indication: HEPATITIS C
     Route: 048
     Dates: start: 20120525, end: 20120719
  2. RIBAVIRIN [Concomitant]
     Route: 048
     Dates: start: 20120808
  3. PEGASYS [Concomitant]
     Route: 058
     Dates: start: 20120808
  4. PEGASYS [Concomitant]
     Indication: HEPATITIS C
     Route: 058
     Dates: start: 20120525, end: 20120719
  5. INCIVEK [Suspect]
     Indication: HEPATITIS C
     Route: 048
     Dates: start: 20120525, end: 20120719

REACTIONS (2)
  - NAUSEA [None]
  - APLASTIC ANAEMIA [None]
